FAERS Safety Report 26202857 (Version 1)
Quarter: 2025Q4

REPORT INFORMATION
  Report Type: Report from Study
  Country: US (occurrence: US)
  Receive Date: 20251226
  Receipt Date: 20251226
  Transmission Date: 20260118
  Serious: Yes (Other)
  Sender: ROCHE
  Company Number: US-ROCHE-10000451894

PATIENT
  Age: 44 Year
  Sex: Female
  Weight: 88.45 kg

DRUGS (17)
  1. XOLAIR [Suspect]
     Active Substance: OMALIZUMAB
     Indication: Idiopathic urticaria
     Route: 058
     Dates: start: 20220210
  2. XOLAIR [Suspect]
     Active Substance: OMALIZUMAB
     Route: 058
     Dates: start: 20220603
  3. XOLAIR [Suspect]
     Active Substance: OMALIZUMAB
     Route: 058
  4. LIDOCAINE [Suspect]
     Active Substance: LIDOCAINE
     Indication: Musculoskeletal disorder
  5. DEXAMETHASONE [Suspect]
     Active Substance: DEXAMETHASONE
     Indication: Musculoskeletal disorder
  6. ZYRTEC [Concomitant]
     Active Substance: CETIRIZINE HYDROCHLORIDE
  7. ALLEGRA [Concomitant]
     Active Substance: FEXOFENADINE HYDROCHLORIDE
  8. MONTELUKAST [Concomitant]
     Active Substance: MONTELUKAST
  9. FLONASE [Concomitant]
     Active Substance: FLUTICASONE PROPIONATE
  10. SIMETHICONE (DIMETHICONE) [Concomitant]
     Active Substance: DIMETHICONE
  11. TOPIRAMATE [Concomitant]
     Active Substance: TOPIRAMATE
     Dosage: 25MG IN THE MORNING AND 100MG AT NIGHT
  12. VITAMIN C [Concomitant]
     Active Substance: ASCORBIC ACID
  13. VITAMIN D3 [Concomitant]
     Active Substance: CHOLECALCIFEROL
  14. ZOFRAN [Concomitant]
     Active Substance: ONDANSETRON HYDROCHLORIDE
  15. HYDROCORTISONE [Concomitant]
     Active Substance: HYDROCORTISONE
  16. EPIPEN [Concomitant]
     Active Substance: EPINEPHRINE
  17. BENADRYL [Concomitant]
     Active Substance: DIPHENHYDRAMINE HYDROCHLORIDE

REACTIONS (8)
  - Anaphylactic reaction [Recovered/Resolved]
  - Off label use [Unknown]
  - Feeling hot [Recovered/Resolved]
  - Cough [Recovered/Resolved]
  - Throat tightness [Recovered/Resolved]
  - Throat clearing [Recovered/Resolved]
  - Cold sweat [Recovered/Resolved]
  - Angioedema [Recovered/Resolved]

NARRATIVE: CASE EVENT DATE: 20220506
